FAERS Safety Report 6305614-X (Version None)
Quarter: 2009Q3

REPORT INFORMATION
  Report Type: 
  Country: None (occurrence: None)
  Receive Date: 20090806
  Receipt Date: 20090729
  Transmission Date: 20100115
  Serious: Yes (Disabling, Other)
  Sender: FDA-Public Use
  Company Number: 2009AL005004

PATIENT
  Age: 31 Year
  Sex: Female

DRUGS (6)
  1. FLUOXETINE [Suspect]
     Indication: DEPRESSION
     Dosage: 20 MG; PO
     Route: 048
     Dates: start: 20090516, end: 20090619
  2. MIRTAZAPINE [Suspect]
     Indication: DEPRESSION
     Dosage: 15 MG; PO
     Route: 048
     Dates: start: 20090516, end: 20090619
  3. DIAZEPAM [Concomitant]
  4. OMEPRAZOLE [Concomitant]
  5. NAPROXEN [Concomitant]
  6. NITRAZEPAM [Concomitant]

REACTIONS (4)
  - CARDIAC FAILURE [None]
  - CELLULITIS [None]
  - DEEP VEIN THROMBOSIS [None]
  - GAIT DISTURBANCE [None]
